FAERS Safety Report 6834751-6 (Version None)
Quarter: 2010Q3

REPORT INFORMATION
  Report Type: 
  Country: None (occurrence: None)
  Receive Date: 20100712
  Receipt Date: 20070523
  Transmission Date: 20110219
  Serious: No
  Sender: FDA-Public Use
  Company Number: US-PFIZER INC-2007027068

PATIENT
  Sex: Female
  Weight: 61.23 kg

DRUGS (7)
  1. CHANTIX [Suspect]
     Indication: SMOKING CESSATION THERAPY
     Dates: start: 20070329, end: 20070401
  2. METHADONE HCL [Concomitant]
     Indication: PAIN
  3. SOMA [Concomitant]
     Indication: PAIN
  4. NORCO [Concomitant]
     Indication: PAIN
  5. ZESTRIL [Concomitant]
     Indication: HYPERTENSION
  6. PREMPRO [Concomitant]
     Indication: HORMONE THERAPY
  7. LEVAQUIN [Concomitant]
     Indication: URINARY TRACT INFECTION

REACTIONS (7)
  - ABNORMAL DREAMS [None]
  - BONE PAIN [None]
  - DYSGEUSIA [None]
  - MUSCULOSKELETAL PAIN [None]
  - NAUSEA [None]
  - PAIN [None]
  - VOMITING [None]
